FAERS Safety Report 19826722 (Version 3)
Quarter: 2022Q1

REPORT INFORMATION
  Report Type: Spontaneous
  Country: US (occurrence: US)
  Receive Date: 20210913
  Receipt Date: 20220204
  Transmission Date: 20220424
  Serious: Yes (Other)
  Sender: FDA-Public Use
  Company Number: US-CELGENE-USA-20210900130

PATIENT
  Age: 79 Year
  Sex: Female

DRUGS (1)
  1. REVLIMID [Suspect]
     Active Substance: LENALIDOMIDE
     Indication: Plasma cell myeloma
     Dosage: 5 MILLIGRAM
     Route: 048
     Dates: start: 202104

REACTIONS (5)
  - Neuropathy peripheral [Unknown]
  - Product dose omission issue [Unknown]
  - Peripheral swelling [Unknown]
  - Rash [Unknown]
  - Herpes zoster [Unknown]

NARRATIVE: CASE EVENT DATE: 20210826
